FAERS Safety Report 22365583 (Version 1)
Quarter: 2023Q2

REPORT INFORMATION
  Report Type: Spontaneous
  Country: CO (occurrence: CO)
  Receive Date: 20230525
  Receipt Date: 20230525
  Transmission Date: 20230721
  Serious: Yes (Other)
  Sender: FDA-Public Use
  Company Number: CO-ABBOTT-2023A-1360763

PATIENT
  Age: 25 Year
  Sex: Female

DRUGS (2)
  1. VALPROATE SODIUM [Suspect]
     Active Substance: VALPROATE SODIUM
     Indication: Epilepsy
     Dosage: 15 MG/KG DAY
     Route: 048
     Dates: start: 2023
  2. VALPROATE SODIUM [Suspect]
     Active Substance: VALPROATE SODIUM
     Indication: Epilepsy
     Dosage: 250 MG IN THE MORNING AND 500 MG AT NIGHT, DAILY DOSE: 750 MILLIGRAM
     Route: 048
     Dates: start: 2023

REACTIONS (5)
  - Loss of consciousness [Unknown]
  - Drug level decreased [Unknown]
  - Syncope [Unknown]
  - Maternal exposure during pregnancy [Unknown]
  - Pregnancy test positive [Unknown]

NARRATIVE: CASE EVENT DATE: 20230101
